FAERS Safety Report 8477139 (Version 5)
Quarter: 2013Q3

REPORT INFORMATION
  Report Type: Report from Study
  Country: DK (occurrence: DK)
  Receive Date: 20120326
  Receipt Date: 20130804
  Transmission Date: 20140515
  Serious: Yes (Hospitalization)
  Sender: FDA-Public Use
  Company Number: DK-ROCHE-1049692

PATIENT
  Age: 69 Year
  Sex: Male

DRUGS (16)
  1. RITUXIMAB [Suspect]
     Indication: MALIGNANT LYMPHOID NEOPLASM
     Route: 042
     Dates: start: 20110822
  2. RITUXIMAB [Suspect]
     Route: 042
     Dates: start: 20110905
  3. RITUXIMAB [Suspect]
     Route: 042
     Dates: start: 20120123
  4. RITUXIMAB [Suspect]
     Dosage: SECOND COURSE OF MAINTANENCE DOSE
     Route: 042
     Dates: start: 20120402
  5. FILGRASTIM [Suspect]
     Indication: MALIGNANT LYMPHOID NEOPLASM
     Route: 042
     Dates: start: 20110823
  6. FILGRASTIM [Suspect]
     Route: 042
     Dates: start: 20110906
  7. PREDNISONE [Suspect]
     Indication: MALIGNANT LYMPHOID NEOPLASM
     Route: 048
     Dates: start: 20110822
  8. PREDNISONE [Suspect]
     Route: 048
     Dates: start: 20110905
  9. CYCLOPHOSPHAMIDE [Suspect]
     Indication: MALIGNANT LYMPHOID NEOPLASM
     Route: 042
     Dates: start: 20110822
  10. CYCLOPHOSPHAMIDE [Suspect]
     Route: 042
     Dates: start: 20110905
  11. DOXORUBIN [Suspect]
     Indication: MALIGNANT LYMPHOID NEOPLASM
     Route: 042
     Dates: start: 20110822
  12. DOXORUBIN [Suspect]
     Route: 042
     Dates: start: 20110905
  13. VINCRISTINE [Suspect]
     Indication: MALIGNANT LYMPHOID NEOPLASM
     Route: 042
     Dates: start: 20110822
  14. VINCRISTINE [Suspect]
     Route: 042
     Dates: start: 20110905
  15. VINCRISTINE [Suspect]
     Dosage: 5 DOSES
     Route: 042
     Dates: start: 20111205
  16. WARFARIN SODIUM [Suspect]
     Indication: DEEP VEIN THROMBOSIS
     Route: 048
     Dates: start: 20111205

REACTIONS (1)
  - Gastric ulcer haemorrhage [Recovered/Resolved]
